FAERS Safety Report 7152340-3 (Version None)
Quarter: 2010Q4

REPORT INFORMATION
  Report Type: 
  Country: None (occurrence: None)
  Receive Date: 20101213
  Receipt Date: 20101201
  Transmission Date: 20110411
  Serious: Yes (Hospitalization, Other)
  Sender: FDA-Public Use
  Company Number: US-PAR PHARMACEUTICAL, INC-2010SCPR002329

PATIENT
  Age: 49 Year
  Sex: Male

DRUGS (2)
  1. DOXYCYCLINE [Suspect]
     Indication: COUGH
     Dosage: UNK
     Route: 065
  2. DOXYCYCLINE [Suspect]
     Indication: OROPHARYNGEAL PAIN

REACTIONS (1)
  - STEVENS-JOHNSON SYNDROME [None]
